FAERS Safety Report 11630244 (Version 1)
Quarter: 2015Q4

REPORT INFORMATION
  Report Type: Spontaneous
  Country: US (occurrence: US)
  Receive Date: 20151014
  Receipt Date: 20151014
  Transmission Date: 20160304
  Serious: Yes (Other)
  Sender: FDA-Public Use
  Company Number: US-GLAXOSMITHKLINE-US2015GSK139536

PATIENT
  Sex: Female
  Weight: 51 kg

DRUGS (4)
  1. IMITREX [Suspect]
     Active Substance: SUMATRIPTAN\SUMATRIPTAN SUCCINATE
     Indication: MIGRAINE
  2. RELPAX [Suspect]
     Active Substance: ELETRIPTAN HYDROBROMIDE
  3. SUMATRIPTAN SUCCINATE. [Suspect]
     Active Substance: SUMATRIPTAN SUCCINATE
     Indication: MIGRAINE
  4. ELETRIPTAN HYDROBROMIDE [Suspect]
     Active Substance: ELETRIPTAN HYDROBROMIDE

REACTIONS (6)
  - Vomiting [Unknown]
  - Adverse drug reaction [Unknown]
  - Brain neoplasm [Unknown]
  - Brain operation [Unknown]
  - Migraine [Unknown]
  - Drug ineffective [Unknown]

NARRATIVE: CASE EVENT DATE: 2000
